FAERS Safety Report 20637806 (Version 5)
Quarter: 2022Q2

REPORT INFORMATION
  Report Type: Spontaneous
  Country: US (occurrence: US)
  Receive Date: 20220325
  Receipt Date: 20220620
  Transmission Date: 20220721
  Serious: No
  Sender: FDA-Public Use
  Company Number: US-JNJFOC-20220325027

PATIENT
  Age: 22 Year
  Sex: Female
  Weight: 81.720 kg

DRUGS (7)
  1. TREMFYA [Suspect]
     Active Substance: GUSELKUMAB
     Indication: Psoriatic arthropathy
     Route: 065
     Dates: start: 202201
  2. TREMFYA [Suspect]
     Active Substance: GUSELKUMAB
     Route: 065
     Dates: start: 20220209
  3. SULFASALAZINE [Concomitant]
     Active Substance: SULFASALAZINE
     Indication: Psoriatic arthropathy
  4. FLUOXETINE [Concomitant]
     Active Substance: FLUOXETINE HYDROCHLORIDE
     Indication: Depression
  5. JANSSEN COVID-19 VACCINE [Concomitant]
     Active Substance: AD26.COV2.S
     Dosage: 100MG/ML?SITE OF ADMINISTRATION: UPPER THIGH
     Dates: start: 20220309
  6. NAPROXEN [Concomitant]
     Active Substance: NAPROXEN
     Indication: Arthralgia
  7. NAPROXEN [Concomitant]
     Active Substance: NAPROXEN
     Indication: Myalgia

REACTIONS (7)
  - Accidental exposure to product [Unknown]
  - Product administration error [Unknown]
  - Product dose omission issue [Unknown]
  - Device malfunction [Unknown]
  - Injection site pain [Recovered/Resolved]
  - Fear of injection [Recovered/Resolved]
  - Pain [Recovered/Resolved]

NARRATIVE: CASE EVENT DATE: 20220301
